FAERS Safety Report 6286908-3 (Version None)
Quarter: 2009Q3

REPORT INFORMATION
  Report Type: 
  Country: None (occurrence: None)
  Receive Date: 20090728
  Receipt Date: 20090721
  Transmission Date: 20100115
  Serious: Yes (Other)
  Sender: FDA-Public Use
  Company Number: US-ASTRAZENECA-2009SE05458

PATIENT
  Age: 25 Year
  Sex: Female
  Weight: 99.8 kg

DRUGS (6)
  1. SEROQUEL [Suspect]
     Route: 048
     Dates: start: 20090626, end: 20090720
  2. ZOLOFT [Concomitant]
  3. SYNTHROID [Concomitant]
  4. FLORINEF [Concomitant]
  5. KEPPRA [Concomitant]
  6. TRIPHASIL-21 [Concomitant]

REACTIONS (2)
  - CONVULSION [None]
  - MOOD SWINGS [None]
